FAERS Safety Report 5012752-0 (Version None)
Quarter: 2006Q2

REPORT INFORMATION
  Report Type: 
  Country: None (occurrence: None)
  Receive Date: 20060530
  Receipt Date: 20060119
  Transmission Date: 20061013
  Serious: Yes (Other)
  Sender: FDA-Public Use
  Company Number: US-BRISTOL-MYERS SQUIBB COMPANY-13256284

PATIENT
  Age: 75 Year
  Sex: Female
  Weight: 57 kg

DRUGS (5)
  1. ERBITUX [Suspect]
     Indication: COLORECTAL CANCER
     Route: 042
     Dates: start: 20060118, end: 20060118
  2. IRINOTECAN HCL [Concomitant]
     Indication: COLORECTAL CANCER
  3. BENADRYL [Concomitant]
     Indication: PREMEDICATION
     Dosage: ADMINISTERED 30 MINUTES PRIOR TO TEST DOSE OF CETUXIMAB.
     Route: 048
     Dates: start: 20060118
  4. TYLENOL (GELTAB) [Concomitant]
     Indication: PREMEDICATION
     Dosage: 1 DOSAGE FORM = 10 GRAINS.  ADMINISTERED 30 MINUTES PRIOR TO TEST DOSE OF CETUXIMAB.
     Route: 048
     Dates: start: 20060118
  5. VENOFER [Concomitant]
     Indication: PREMEDICATION
     Dates: start: 20060118

REACTIONS (1)
  - INFUSION RELATED REACTION [None]
